FAERS Safety Report 14027138 (Version 5)
Quarter: 2018Q2

REPORT INFORMATION
  Report Type: Spontaneous
  Country: AR (occurrence: AR)
  Receive Date: 20170929
  Receipt Date: 20180426
  Transmission Date: 20180711
  Serious: Yes (Other)
  Sender: FDA-Public Use
  Company Number: AR-AMGEN-ARGSP2017147271

PATIENT
  Age: 77 Year
  Sex: Female

DRUGS (1)
  1. ENBREL [Suspect]
     Active Substance: ETANERCEPT
     Indication: RHEUMATOID ARTHRITIS
     Dosage: 50 MG, WEEKLY
     Route: 065
     Dates: start: 20141001

REACTIONS (3)
  - Aphasia [Unknown]
  - Cognitive disorder [Unknown]
  - Deafness [Unknown]

NARRATIVE: CASE EVENT DATE: 201804
